FAERS Safety Report 7277547-6 (Version None)
Quarter: 2011Q1

REPORT INFORMATION
  Report Type: 
  Country: None (occurrence: None)
  Receive Date: 20110202
  Receipt Date: 20110202
  Transmission Date: 20110831
  Serious: Yes (Life-Threatening, Hospitalization, Disabling, Other)
  Sender: FDA-Public Use
  Company Number: None

PATIENT
  Age: 33 Year
  Sex: Male
  Weight: 95.2554 kg

DRUGS (3)
  1. SIMVASTATIN [Suspect]
     Indication: BLOOD CHOLESTEROL INCREASED
     Dosage: 20MG 1 A DAY NIGHT TIME PO
     Route: 048
     Dates: start: 20100901, end: 20100903
  2. SIMVASTATIN [Suspect]
     Indication: BLOOD CHOLESTEROL INCREASED
     Dosage: 20MG 1 A DAY NIGHT TIME PO
     Route: 048
     Dates: start: 20060815, end: 20100831
  3. LISINOPRIL [Concomitant]

REACTIONS (2)
  - PAIN [None]
  - MOBILITY DECREASED [None]
